FAERS Safety Report 11184498 (Version 2)
Quarter: 2015Q3

REPORT INFORMATION
  Report Type: Spontaneous
  Country: US (occurrence: US)
  Receive Date: 20150612
  Receipt Date: 20150720
  Transmission Date: 20151125
  Serious: Yes (Death)
  Sender: FDA-Public Use
  Company Number: US-AMGEN-USASP2015056101

PATIENT
  Age: 77 Year
  Sex: Male

DRUGS (1)
  1. PROLIA [Suspect]
     Active Substance: DENOSUMAB
     Indication: SENILE OSTEOPOROSIS
     Dosage: UNK
     Route: 065
     Dates: end: 20140626

REACTIONS (1)
  - Death [Fatal]

NARRATIVE: CASE EVENT DATE: 20140707
